FAERS Safety Report 8356482-6 (Version None)
Quarter: 2012Q2

REPORT INFORMATION
  Report Type: 
  Country: None (occurrence: None)
  Receive Date: 20120514
  Receipt Date: 20120511
  Transmission Date: 20120825
  Serious: Yes (Other)
  Sender: FDA-Public Use
  Company Number: JP-PFIZER INC-2012114842

PATIENT
  Age: 27 Year
  Sex: Male

DRUGS (3)
  1. DIFLUNISAL [Concomitant]
     Dosage: UNK
  2. VARENICLINE TARTRATE [Suspect]
     Dosage: UNK
     Route: 048
     Dates: start: 20120322, end: 20120403
  3. VARENICLINE TARTRATE [Suspect]
     Dosage: 2 MG/DAY
     Route: 048
     Dates: start: 20120404

REACTIONS (5)
  - MENTAL DISORDER [None]
  - PANIC REACTION [None]
  - AGITATION [None]
  - ABNORMAL BEHAVIOUR [None]
  - AGGRESSION [None]
